FAERS Safety Report 15940436 (Version 8)
Quarter: 2019Q2

REPORT INFORMATION
  Report Type: Report from Study
  Country: US (occurrence: US)
  Receive Date: 20190208
  Receipt Date: 20190603
  Transmission Date: 20190711
  Serious: Yes (Hospitalization, Other)
  Sender: FDA-Public Use
  Company Number: US-TESARO-2019-TSO00825-US

PATIENT
  Age: 82 Year
  Sex: Female
  Weight: 91.97 kg

DRUGS (5)
  1. ZEJULA [Suspect]
     Active Substance: NIRAPARIB
     Dosage: 200 MG, QPM WITH FOOD
  2. ZEJULA [Suspect]
     Active Substance: NIRAPARIB
     Dosage: 300 MG, QD
     Route: 048
     Dates: end: 20190417
  3. ZEJULA [Suspect]
     Active Substance: NIRAPARIB
     Dosage: 300 MG, QD
     Route: 048
     Dates: start: 20190312
  4. ZEJULA [Suspect]
     Active Substance: NIRAPARIB
     Dosage: 200 MG, QPM WITH FOOD
     Dates: end: 20190320
  5. ZEJULA [Suspect]
     Active Substance: NIRAPARIB
     Indication: OVARIAN CANCER
     Dosage: 300 MG, QD BY MOUTH ONCE DAILY
     Route: 048
     Dates: start: 20190126

REACTIONS (15)
  - Hospitalisation [Unknown]
  - Feeling abnormal [Unknown]
  - Anaemia [Unknown]
  - Malaise [Not Recovered/Not Resolved]
  - Neoplasm progression [Unknown]
  - Kidney infection [Unknown]
  - Vaginal odour [Unknown]
  - Musculoskeletal discomfort [Unknown]
  - Constipation [Unknown]
  - Vaginal haemorrhage [Not Recovered/Not Resolved]
  - Eating disorder [Unknown]
  - Taste disorder [Not Recovered/Not Resolved]
  - Urinary tract infection [Unknown]
  - Fatigue [Not Recovered/Not Resolved]
  - Muscle spasms [Unknown]

NARRATIVE: CASE EVENT DATE: 201901
